FAERS Safety Report 21302583 (Version 1)
Quarter: 2022Q3

REPORT INFORMATION
  Report Type: Report from Study
  Country: CA (occurrence: CA)
  Receive Date: 20220907
  Receipt Date: 20220907
  Transmission Date: 20221027
  Serious: Yes (Hospitalization)
  Sender: FDA-Public Use
  Company Number: CA-NOVARTISPH-NVSC2022CA199781

PATIENT
  Sex: Female

DRUGS (1)
  1. KISQALI [Interacting]
     Active Substance: RIBOCICLIB
     Indication: Breast cancer metastatic
     Dosage: 600 MG (21 DAYS ON, 7 DAYS OFF)
     Route: 048
     Dates: start: 20191025

REACTIONS (1)
  - Potentiating drug interaction [Unknown]
